FAERS Safety Report 7382243-0 (Version None)
Quarter: 2011Q1

REPORT INFORMATION
  Report Type: 
  Country: None (occurrence: None)
  Receive Date: 20110329
  Receipt Date: 20110323
  Transmission Date: 20110831
  Serious: Yes (Hospitalization)
  Sender: FDA-Public Use
  Company Number: JP-MERCK-1103USA01141

PATIENT
  Age: 43 Year
  Sex: Male
  Weight: 72 kg

DRUGS (4)
  1. PROPECIA [Suspect]
     Indication: ALOPECIA
     Route: 048
     Dates: start: 20060401, end: 20101010
  2. CEPHARANTHINE [Suspect]
     Indication: ALOPECIA
     Route: 048
     Dates: start: 20100701, end: 20101010
  3. MINOMYCIN [Suspect]
     Indication: FOLLICULITIS
     Route: 048
     Dates: start: 20090601, end: 20101010
  4. ZYRTEC [Suspect]
     Indication: RHINITIS ALLERGIC
     Route: 048
     Dates: start: 20031101, end: 20101010

REACTIONS (1)
  - LIVER DISORDER [None]
